FAERS Safety Report 8621335-2 (Version None)
Quarter: 2012Q3

REPORT INFORMATION
  Report Type: 
  Country: None (occurrence: None)
  Receive Date: 20120824
  Receipt Date: 20120813
  Transmission Date: 20120928
  Serious: Yes (Other)
  Sender: FDA-Public Use
  Company Number: DE-ROCHE-1106623

PATIENT
  Age: 51 Year
  Sex: Male

DRUGS (10)
  1. MABTHERA [Suspect]
     Indication: NON-HODGKIN'S LYMPHOMA
     Route: 065
  2. CYCLOPHOSPHAMIDE [Suspect]
     Indication: NON-HODGKIN'S LYMPHOMA
     Route: 065
  3. PREDNISONE [Suspect]
     Indication: HIV INFECTION
  4. CYCLOPHOSPHAMIDE [Suspect]
     Indication: HIV INFECTION
  5. DOXORUBICIN HCL [Suspect]
     Indication: HIV INFECTION
  6. MABTHERA [Suspect]
     Indication: HIV INFECTION
  7. VINCRISTINE [Suspect]
     Indication: HIV INFECTION
  8. PREDNISONE TAB [Suspect]
     Indication: NON-HODGKIN'S LYMPHOMA
     Route: 065
  9. DOXORUBICIN HCL [Suspect]
     Indication: NON-HODGKIN'S LYMPHOMA
     Route: 065
  10. VINCRISTINE [Suspect]
     Indication: NON-HODGKIN'S LYMPHOMA
     Route: 065

REACTIONS (1)
  - PROGRESSIVE MULTIFOCAL LEUKOENCEPHALOPATHY [None]
